FAERS Safety Report 23883788 (Version 3)
Quarter: 2024Q4

REPORT INFORMATION
  Report Type: Spontaneous
  Country: US (occurrence: US)
  Receive Date: 20240522
  Receipt Date: 20241020
  Transmission Date: 20250115
  Serious: No
  Sender: SANOFI AVENTIS
  Company Number: US-SA-SAC20240521001385

PATIENT
  Age: 51 Year
  Sex: Female
  Weight: 68.9 kg

DRUGS (9)
  1. DUPIXENT [Suspect]
     Active Substance: DUPILUMAB
     Indication: Eosinophilic oesophagitis
     Dosage: 300 MG, QW
     Route: 058
  2. DUPIXENT [Suspect]
     Active Substance: DUPILUMAB
     Dosage: 300.000MG QW
  3. BOTOX [Concomitant]
     Active Substance: ONABOTULINUMTOXINA
     Dosage: UNK
  4. CEFDINIR [Concomitant]
     Active Substance: CEFDINIR
     Dosage: UNK
  5. RETIN-A [Concomitant]
     Active Substance: TRETINOIN
     Dosage: UNKNOWN
  6. TUSSIN [Concomitant]
     Active Substance: GUAIFENESIN
     Dosage: UNKNOWN
  7. FARXIGA [Concomitant]
     Active Substance: DAPAGLIFLOZIN PROPANEDIOL
     Dosage: UNKNOWN
  8. METRONIDAZOLE [Concomitant]
     Active Substance: METRONIDAZOLE
     Dosage: UNKNOWN
  9. ZETIA [Concomitant]
     Active Substance: EZETIMIBE
     Dosage: UNKNOWN

REACTIONS (12)
  - Feeling abnormal [Not Recovered/Not Resolved]
  - Hypoaesthesia oral [Not Recovered/Not Resolved]
  - Abdominal pain [Unknown]
  - Arthritis [Unknown]
  - Dyspnoea [Unknown]
  - Eye disorder [Unknown]
  - Arthralgia [Unknown]
  - Eye pruritus [Not Recovered/Not Resolved]
  - Injection site swelling [Not Recovered/Not Resolved]
  - Injection site pain [Not Recovered/Not Resolved]
  - Accidental exposure to product [Unknown]
  - Exposure via skin contact [Unknown]

NARRATIVE: CASE EVENT DATE: 20240501
